FAERS Safety Report 19233336 (Version 1)
Quarter: 2021Q2

REPORT INFORMATION
  Report Type: Spontaneous
  Country: GB (occurrence: GB)
  Receive Date: 20210507
  Receipt Date: 20210507
  Transmission Date: 20210717
  Serious: Yes (Other)
  Sender: FDA-Public Use
  Company Number: GB-TEVA-2021-GB-1908475

PATIENT
  Age: 69 Year
  Sex: Female
  Weight: 88.9 kg

DRUGS (4)
  1. RENNIE [Concomitant]
  2. SOLPADOL [CODEINE PHOSPHATE;PARACETAMOL] [Concomitant]
     Active Substance: ACETAMINOPHEN\CODEINE PHOSPHATE
  3. RAMIPRIL. [Suspect]
     Active Substance: RAMIPRIL
     Indication: HYPERTENSION
     Dosage: 1.25 MG
     Route: 048
     Dates: start: 20210416, end: 20210417
  4. BECONASE AQ [Concomitant]
     Active Substance: BECLOMETHASONE DIPROPIONATE MONOHYDRATE
     Indication: SEASONAL ALLERGY

REACTIONS (12)
  - Dyspepsia [Recovered/Resolved]
  - Decreased appetite [Recovered/Resolved]
  - Oral pain [Recovering/Resolving]
  - Glossodynia [Recovering/Resolving]
  - Abdominal discomfort [Recovered/Resolved]
  - Rash macular [Recovering/Resolving]
  - Fatigue [Recovered/Resolved]
  - Tongue disorder [Recovering/Resolving]
  - Abdominal distension [Recovered/Resolved]
  - Somnolence [Recovered/Resolved]
  - Headache [Recovered/Resolved]
  - Arthralgia [Recovered/Resolved]

NARRATIVE: CASE EVENT DATE: 20210416
